FAERS Safety Report 5938032-4 (Version None)
Quarter: 2008Q4

REPORT INFORMATION
  Report Type: 
  Country: None (occurrence: None)
  Receive Date: 20081031
  Receipt Date: 20081022
  Transmission Date: 20090506
  Serious: Yes (Other)
  Sender: FDA-Public Use
  Company Number: GB-PFIZER INC-2008086238

PATIENT
  Sex: Male
  Weight: 110 kg

DRUGS (10)
  1. VIAGRA [Suspect]
     Indication: ERECTILE DYSFUNCTION
     Route: 048
     Dates: start: 20080626, end: 20080815
  2. LOSARTAN POTASSIUM [Concomitant]
     Route: 048
  3. ACETYLSALICYLIC ACID SRT [Concomitant]
  4. PERINDOPRIL [Concomitant]
  5. VIAZEM XL [Concomitant]
  6. FLUTICASONE PROPIONATE [Concomitant]
  7. SEREVENT [Concomitant]
  8. SALBUTAMOL [Concomitant]
  9. HUMALOG [Concomitant]
  10. LANTUS [Concomitant]

REACTIONS (2)
  - OESOPHAGEAL SPASM [None]
  - THROAT IRRITATION [None]
